FAERS Safety Report 8031156-X (Version None)
Quarter: 2011Q4

REPORT INFORMATION
  Report Type: 
  Country: None (occurrence: None)
  Receive Date: 20111202
  Receipt Date: 20100816
  Transmission Date: 20120403
  Serious: Yes (Hospitalization)
  Sender: FDA-Public Use
  Company Number: 2010SP044541

PATIENT
  Age: 33 Year
  Sex: Female
  Weight: 148.7798 kg

DRUGS (3)
  1. NUVARING [Suspect]
     Indication: CONTRACEPTION
     Dosage: VAG
     Route: 067
     Dates: start: 20070501, end: 20080822
  2. BENADRYL [Suspect]
     Indication: NASAL DECONGESTION THERAPY
  3. SYNTHROID [Concomitant]

REACTIONS (5)
  - PULMONARY EMBOLISM [None]
  - DRUG HYPERSENSITIVITY [None]
  - BRONCHITIS [None]
  - HYPERVENTILATION [None]
  - SINUS DISORDER [None]
